FAERS Safety Report 11240515 (Version 2)
Quarter: 2015Q3

REPORT INFORMATION
  Report Type: Spontaneous
  Country: PL (occurrence: PL)
  Receive Date: 20150706
  Receipt Date: 20150811
  Transmission Date: 20151125
  Serious: Yes (Disabling, Other)
  Sender: FDA-Public Use
  Company Number: PHHY2015PL080677

PATIENT
  Age: 53 Year
  Sex: Female
  Weight: 93 kg

DRUGS (4)
  1. ZOMETA [Suspect]
     Active Substance: ZOLEDRONIC ACID
     Indication: BLOOD CALCIUM ABNORMAL
     Dosage: 1 AMP/MONTH, QMO
     Route: 042
     Dates: start: 200905, end: 201307
  2. FEMARA [Suspect]
     Active Substance: LETROZOLE
     Indication: PRODUCT USED FOR UNKNOWN INDICATION
     Dosage: 1 DF, QD (1 TABLET/24 HOURS)
     Route: 048
  3. ADRIAMYCIN [Concomitant]
     Active Substance: DOXORUBICIN HYDROCHLORIDE
     Indication: PRODUCT USED FOR UNKNOWN INDICATION
     Dosage: 8 INFUSIONS
     Route: 042
     Dates: start: 200903, end: 200911
  4. TAXOTERE [Concomitant]
     Active Substance: DOCETAXEL
     Indication: PRODUCT USED FOR UNKNOWN INDICATION
     Dosage: 8 INFUSIONS
     Route: 042
     Dates: start: 200903, end: 200911

REACTIONS (24)
  - Mouth swelling [Unknown]
  - Glycosylated haemoglobin increased [Unknown]
  - Blood cholesterol increased [Unknown]
  - Haematocrit decreased [Unknown]
  - High density lipoprotein decreased [Unknown]
  - Osteonecrosis of jaw [Unknown]
  - Fistula [Unknown]
  - Oral disorder [Unknown]
  - Gingivitis [Unknown]
  - Exposed bone in jaw [Unknown]
  - Lymph node palpable [Unknown]
  - Osteomyelitis [Unknown]
  - Blood phosphorus increased [Unknown]
  - Nephrolithiasis [Unknown]
  - Sensory loss [Recovering/Resolving]
  - Feeding disorder [Unknown]
  - Oral mucosal erythema [Unknown]
  - Blood fibrinogen increased [Unknown]
  - Blood urea increased [Unknown]
  - Noninfective gingivitis [Not Recovered/Not Resolved]
  - Oral pain [Unknown]
  - Blood triglycerides increased [Unknown]
  - Lymphadenopathy [Unknown]
  - Lymph node pain [Unknown]

NARRATIVE: CASE EVENT DATE: 201408
